FAERS Safety Report 8283521-3 (Version None)
Quarter: 2012Q2

REPORT INFORMATION
  Report Type: 
  Country: None (occurrence: None)
  Receive Date: 20120413
  Receipt Date: 20120410
  Transmission Date: 20120825
  Serious: No
  Sender: FDA-Public Use
  Company Number: US-PFIZER INC-2012089612

PATIENT
  Sex: Female
  Weight: 88.435 kg

DRUGS (4)
  1. ADVIL LIQUI-GELS [Suspect]
     Indication: ARTHRITIS
     Dosage: UNK, 1X/DAY
     Route: 048
     Dates: start: 20120401, end: 20120407
  2. ADVIL LIQUI-GELS [Suspect]
  3. GLIPIZIDE [Concomitant]
     Indication: DIABETES MELLITUS
     Dosage: UNK
  4. ADVIL LIQUI-GELS [Suspect]
     Indication: PAIN IN EXTREMITY

REACTIONS (1)
  - ABDOMINAL DISCOMFORT [None]
